FAERS Safety Report 5327865-3 (Version None)
Quarter: 2007Q2

REPORT INFORMATION
  Report Type: 
  Country: None (occurrence: None)
  Receive Date: 20070517
  Receipt Date: 20070515
  Transmission Date: 20071010
  Serious: Yes (Other)
  Sender: FDA-Public Use
  Company Number: FR-BRISTOL-MYERS SQUIBB COMPANY-13717152

PATIENT
  Age: 40 Year
  Sex: Male
  Weight: 66 kg

DRUGS (6)
  1. REYATAZ [Suspect]
     Indication: HIV INFECTION
     Route: 048
     Dates: start: 20061014, end: 20061124
  2. NORVIR [Suspect]
     Indication: HIV INFECTION
     Route: 048
     Dates: start: 20061014, end: 20061124
  3. TRUVADA [Concomitant]
     Dates: start: 20061014, end: 20061124
  4. BACTRIM [Concomitant]
     Dates: start: 20061014
  5. SUBUTEX [Concomitant]
     Dates: start: 20061006
  6. IMOVANE [Concomitant]

REACTIONS (3)
  - ALANINE AMINOTRANSFERASE INCREASED [None]
  - ASPARTATE AMINOTRANSFERASE INCREASED [None]
  - CELL DEATH [None]
